FAERS Safety Report 10898517 (Version 1)
Quarter: 2015Q1

REPORT INFORMATION
  Report Type: Spontaneous
  Country: US (occurrence: US)
  Receive Date: 20150309
  Receipt Date: 20150309
  Transmission Date: 20150721
  Serious: No
  Sender: FDA-Public Use
  Company Number: US-ABBVIE-14P-163-1258717-00

PATIENT
  Sex: Female
  Weight: 71.28 kg

DRUGS (2)
  1. NORETHINDRONE. [Suspect]
     Active Substance: NORETHINDRONE
     Indication: HORMONE REPLACEMENT THERAPY
     Route: 048
     Dates: start: 20131209, end: 20140103
  2. LUPRON DEPOT [Suspect]
     Active Substance: LEUPROLIDE ACETATE
     Indication: ENDOMETRIOSIS
     Dates: start: 20131209, end: 20131209

REACTIONS (1)
  - Arthralgia [Recovered/Resolved]
